FAERS Safety Report 23102457 (Version 2)
Quarter: 2023Q4

REPORT INFORMATION
  Report Type: Spontaneous
  Country: FR (occurrence: FR)
  Receive Date: 20231025
  Receipt Date: 20231128
  Transmission Date: 20240110
  Serious: Yes (Hospitalization, Other)
  Sender: FDA-Public Use
  Company Number: FR-SA-96007123

PATIENT
  Age: 52 Year
  Sex: Male

DRUGS (5)
  1. RIFAMPIN [Interacting]
     Active Substance: RIFAMPIN
     Indication: Renal tuberculosis
     Dosage: UNK
     Route: 048
     Dates: start: 199405, end: 199411
  2. CORTISONE ACETATE [Interacting]
     Active Substance: CORTISONE ACETATE
     Indication: Adrenal disorder
     Dosage: UNK
  3. ETHAMBUTOL [Concomitant]
     Active Substance: ETHAMBUTOL HYDROCHLORIDE
     Dosage: UNK
  4. PYRAZINAMIDE [Concomitant]
     Active Substance: PYRAZINAMIDE
     Dosage: UNK
  5. ISONIAZID [Concomitant]
     Active Substance: ISONIAZID
     Dosage: UNK

REACTIONS (11)
  - Adrenal insufficiency [Recovered/Resolved]
  - Asthenia [Recovered/Resolved]
  - Abdominal pain [Recovered/Resolved]
  - Nausea [Recovered/Resolved]
  - Vomiting [Recovered/Resolved]
  - Skin discolouration [Recovered/Resolved]
  - Hyponatraemia [Recovered/Resolved]
  - Hyperkalaemia [Recovered/Resolved]
  - Cortisol decreased [Recovered/Resolved]
  - Drug interaction [Recovered/Resolved]
  - Addison^s disease [Recovered/Resolved]

NARRATIVE: CASE EVENT DATE: 19940101
